FAERS Safety Report 23679111 (Version 2)
Quarter: 2024Q2

REPORT INFORMATION
  Report Type: Spontaneous
  Country: US (occurrence: US)
  Receive Date: 20240327
  Receipt Date: 20240412
  Transmission Date: 20240716
  Serious: No
  Sender: FDA-Public Use
  Company Number: US-SANOFI-01988131

PATIENT
  Age: 16 Year
  Sex: Female

DRUGS (1)
  1. DUPIXENT [Suspect]
     Active Substance: DUPILUMAB
     Indication: Product used for unknown indication
     Dosage: 300 MG, QW
     Route: 058

REACTIONS (5)
  - Injection site hypersensitivity [Unknown]
  - Injection site pruritus [Unknown]
  - Injection site pain [Unknown]
  - Pruritus [Unknown]
  - Hypersensitivity [Unknown]

NARRATIVE: CASE EVENT DATE: 20240318
